FAERS Safety Report 25785978 (Version 1)
Quarter: 2025Q3

REPORT INFORMATION
  Report Type: Spontaneous
  Country: US (occurrence: US)
  Receive Date: 20250910
  Receipt Date: 20250910
  Transmission Date: 20251021
  Serious: Yes (Other)
  Sender: BAXTER
  Company Number: US-BAXTER-2025BAX020802

PATIENT
  Age: 66 Year
  Sex: Female
  Weight: 68 kg

DRUGS (1)
  1. NOREPINEPHRINE BITARTRATE [Suspect]
     Active Substance: NOREPINEPHRINE BITARTRATE
     Route: 042
     Dates: start: 20250601

REACTIONS (3)
  - Hypotension [Unknown]
  - Haemodynamic instability [Unknown]
  - Device occlusion [Unknown]

NARRATIVE: CASE EVENT DATE: 20250601
